FAERS Safety Report 16118818 (Version 2)
Quarter: 2019Q2

REPORT INFORMATION
  Report Type: Report from Study
  Country: None (occurrence: US)
  Receive Date: 20190326
  Receipt Date: 20190404
  Transmission Date: 20190711
  Serious: No
  Sender: FDA-Public Use
  Company Number: US-ABBVIE-19S-163-2715757-00

PATIENT
  Age: 80 Year
  Sex: Male
  Weight: 69.46 kg

DRUGS (2)
  1. CREON [Suspect]
     Active Substance: PANCRELIPASE AMYLASE\PANCRELIPASE LIPASE\PANCRELIPASE PROTEASE
     Dosage: 2 CAPSULES WITH MEALS, 1 CAPSULE WITH SNACKS
     Route: 048
     Dates: start: 201901
  2. CREON [Suspect]
     Active Substance: PANCRELIPASE AMYLASE\PANCRELIPASE LIPASE\PANCRELIPASE PROTEASE
     Indication: PANCREATIC CARCINOMA
     Dosage: 2 CAPSULES WITH MEALS, 1 CAPSULE WITH SNACKS
     Route: 048
     Dates: start: 201901

REACTIONS (6)
  - Therapeutic response unexpected [Unknown]
  - Constipation [Unknown]
  - Weight decreased [Unknown]
  - Faeces soft [Not Recovered/Not Resolved]
  - Weight increased [Unknown]
  - Glycosylated haemoglobin increased [Unknown]

NARRATIVE: CASE EVENT DATE: 201901
